FAERS Safety Report 7725369-1 (Version None)
Quarter: 2011Q3

REPORT INFORMATION
  Report Type: 
  Country: None (occurrence: None)
  Receive Date: 20110902
  Receipt Date: 20110822
  Transmission Date: 20111222
  Serious: Yes (Hospitalization)
  Sender: FDA-Public Use
  Company Number: BE-BAYER-2011-073687

PATIENT
  Sex: Male
  Weight: 74 kg

DRUGS (7)
  1. EMCONCOR MITIS [Concomitant]
     Indication: HYPERTENSION
     Dosage: DAILY DOSE 5 MG
     Route: 048
  2. ACETAMINOPHEN [Concomitant]
     Indication: PAIN
     Dosage: DAILY DOSE 500 MG
     Route: 048
  3. NEXAVAR [Suspect]
     Indication: PRODUCT USED FOR UNKNOWN INDICATION
     Dosage: DAILY DOSE 600 MG
     Route: 048
     Dates: start: 20110519
  4. CARDIOASPIRINE [Concomitant]
     Indication: HYPERTENSION
  5. CAPECITABINE [Suspect]
     Indication: PRODUCT USED FOR UNKNOWN INDICATION
     Dosage: DAILY DOSE 1650 MG
     Route: 048
     Dates: start: 20110519
  6. AMLODIPINE BESYLATE [Concomitant]
     Indication: HYPERTENSION
     Dosage: DAILY DOSE 5 MG
     Route: 048
  7. CRESTOR [Concomitant]
     Indication: HYPERCHOLESTEROLAEMIA
     Dosage: DAILY DOSE 10 MG
     Route: 048

REACTIONS (2)
  - PULMONARY EMBOLISM [None]
  - CHEST PAIN [None]
